FAERS Safety Report 13548417 (Version 1)
Quarter: 2017Q2

REPORT INFORMATION
  Report Type: Spontaneous
  Country: US (occurrence: US)
  Receive Date: 20170516
  Receipt Date: 20170516
  Transmission Date: 20170830
  Serious: No
  Sender: FDA-Public Use
  Company Number: US-JNJFOC-20170331838

PATIENT
  Age: 55 Year
  Sex: Female
  Weight: 95.26 kg

DRUGS (5)
  1. MENS ROGAINE EXTRA STRENGTH [Suspect]
     Active Substance: MINOXIDIL
     Indication: ALOPECIA
     Dosage: A LITTEL LESS THAN 1/2 A CAPFULL
     Route: 061
  2. GELATIN [Concomitant]
     Active Substance: GELATIN
     Indication: ALOPECIA
     Route: 065
  3. MENS ROGAINE EXTRA STRENGTH [Suspect]
     Active Substance: MINOXIDIL
     Route: 061
  4. BIOTIN [Concomitant]
     Active Substance: BIOTIN
     Indication: ALOPECIA
     Route: 065
  5. SILICA [Concomitant]
     Active Substance: SILICON DIOXIDE
     Indication: ALOPECIA
     Route: 065

REACTIONS (3)
  - Drug prescribing error [Not Recovered/Not Resolved]
  - Hair growth abnormal [Not Recovered/Not Resolved]
  - Off label use [Not Recovered/Not Resolved]
